FAERS Safety Report 20712923 (Version 1)
Quarter: 2022Q2

REPORT INFORMATION
  Report Type: Spontaneous
  Country: PL (occurrence: PL)
  Receive Date: 20220415
  Receipt Date: 20220415
  Transmission Date: 20220720
  Serious: Yes (Hospitalization, Other)
  Sender: FDA-Public Use
  Company Number: PL-MARC-2022.03.30_2

PATIENT
  Age: 79 Year
  Sex: Male

DRUGS (5)
  1. ATROPINE [Suspect]
     Active Substance: ATROPINE
     Indication: Ventricular extrasystoles
     Dosage: 0.5 MG
     Route: 042
     Dates: start: 20220330, end: 20220330
  2. ATROPINE [Suspect]
     Active Substance: ATROPINE
     Indication: Arrhythmia
  3. EPHEDRINE [Suspect]
     Active Substance: EPHEDRINE
     Indication: Blood pressure decreased
     Dosage: 25 MG
     Route: 042
     Dates: start: 20220330, end: 20220330
  4. MARCAINE [Suspect]
     Active Substance: BUPIVACAINE HYDROCHLORIDE
     Indication: Anaesthesia
     Dosage: 20 MG
     Route: 050
     Dates: start: 20220330, end: 20220330
  5. MIDAZOLAM HYDROCHLORIDE [Suspect]
     Active Substance: MIDAZOLAM HYDROCHLORIDE
     Indication: Sedation
     Dosage: 2 MG
     Route: 042
     Dates: start: 20220330, end: 20220330

REACTIONS (1)
  - Therapeutic product effect delayed [Unknown]

NARRATIVE: CASE EVENT DATE: 20220330
